FAERS Safety Report 7652951-2 (Version None)
Quarter: 2011Q3

REPORT INFORMATION
  Report Type: 
  Country: None (occurrence: None)
  Receive Date: 20110803
  Receipt Date: 20110721
  Transmission Date: 20111222
  Serious: Yes (Other)
  Sender: FDA-Public Use
  Company Number: JP-ROCHE-753777

PATIENT
  Sex: Female
  Weight: 3.1 kg

DRUGS (1)
  1. OSELTAMIVIR [Suspect]
     Indication: INFLUENZA
     Dosage: FORM: ORAL FORMATION(NOT OTHERWISE SPECIFIED)
     Route: 064
     Dates: start: 20101213, end: 20101215

REACTIONS (2)
  - ABDOMINAL DISTENSION [None]
  - MATERNAL EXPOSURE DURING PREGNANCY [None]
